FAERS Safety Report 8791524 (Version 1)
Quarter: 2012Q4

REPORT INFORMATION
  Report Type: Spontaneous
  Country: US (occurrence: None)
  Receive Date: 20120914
  Receipt Date: 20120914
  Transmission Date: 20130627
  Serious: Yes (Other)
  Sender: FDA-Public Use
  Company Number: None

PATIENT
  Age: 44 Year
  Sex: Female
  Weight: 90.72 kg

DRUGS (2)
  1. CAPSAICIN [Suspect]
     Indication: DEGENERATIVE DISC DISEASE
     Route: 061
     Dates: start: 20120905, end: 20120905
  2. CAPSAICIN [Suspect]
     Indication: ARTHRITIS
     Route: 061
     Dates: start: 20120905, end: 20120905

REACTIONS (4)
  - Application site erythema [None]
  - Application site pain [None]
  - Application site pain [None]
  - Application site erosion [None]
